FAERS Safety Report 4293970-6 (Version None)
Quarter: 2004Q1

REPORT INFORMATION
  Report Type: 
  Country: None (occurrence: None)
  Receive Date: 20040210
  Receipt Date: 20040126
  Transmission Date: 20041129
  Serious: Yes (Life-Threatening, Hospitalization)
  Sender: FDA-Public Use
  Company Number: 2004-BP-00645YA

PATIENT
  Age: 72 Year
  Sex: Male

DRUGS (2)
  1. TAMSULOSIN               (TAMSULOSIN HYDROCHLORIDE) [Suspect]
     Dosage: 0.4 MG  PO
     Route: 048
  2. SPINAL ANESTHESIA [Concomitant]

REACTIONS (5)
  - ANGIONEUROTIC OEDEMA [None]
  - BLOOD PRESSURE DECREASED [None]
  - CIRCULATORY COLLAPSE [None]
  - DYSPNOEA [None]
  - OEDEMA MOUTH [None]
